FAERS Safety Report 10511347 (Version 1)
Quarter: 2014Q4

REPORT INFORMATION
  Report Type: Spontaneous
  Country: CO (occurrence: None)
  Receive Date: 20141008
  Receipt Date: 20141008
  Transmission Date: 20150528
  Serious: Yes (Other)
  Sender: FDA-Public Use
  Company Number: 2014-20438

PATIENT
  Age: 69 Year
  Sex: Female

DRUGS (3)
  1. SPIRONOLACTONE. [Concomitant]
     Active Substance: SPIRONOLACTONE
  2. EYLEA [Suspect]
     Active Substance: AFLIBERCEPT
     Indication: AGE-RELATED MACULAR DEGENERATION
     Dates: start: 20140601, end: 20140601
  3. LOSARTAN [Concomitant]
     Active Substance: LOSARTAN

REACTIONS (2)
  - Syncope [None]
  - Inappropriate schedule of drug administration [None]

NARRATIVE: CASE EVENT DATE: 20140815
